FAERS Safety Report 9613271 (Version 4)
Quarter: 2013Q4

REPORT INFORMATION
  Report Type: Report from Study
  Country: DE (occurrence: DE)
  Receive Date: 20131010
  Receipt Date: 20131216
  Transmission Date: 20140711
  Serious: Yes (Death, Hospitalization, Other)
  Sender: FDA-Public Use
  Company Number: DE-ABBVIE-13P-062-1132743-00

PATIENT
  Age: 43 Year
  Sex: Male

DRUGS (6)
  1. TRENANTONE [Suspect]
     Indication: PROSTATE CANCER METASTATIC
     Route: 058
     Dates: start: 20120301, end: 20130820
  2. CHEMOTHERAPEUTICS [Concomitant]
     Indication: PROSTATE CANCER METASTATIC
  3. ANTIANDROGENS [Concomitant]
     Indication: PROSTATE CANCER METASTATIC
     Dates: start: 20130319, end: 20130319
  4. ANTIANDROGENS [Concomitant]
     Indication: ANTIANDROGEN THERAPY
     Dates: start: 20130624
  5. BISPHOSPHONATES [Concomitant]
     Indication: PRODUCT USED FOR UNKNOWN INDICATION
     Route: 042
     Dates: start: 20130416
  6. OSTEOPOROSIS PROPHYLAXIS UNSPECIFIEDD [Concomitant]
     Indication: OSTEOPOROSIS PROPHYLAXIS

REACTIONS (5)
  - Metastases to meninges [Fatal]
  - Circulatory collapse [Fatal]
  - Prostate cancer [Fatal]
  - Prostatic specific antigen increased [Not Recovered/Not Resolved]
  - Blood lactate dehydrogenase increased [Not Recovered/Not Resolved]
